FAERS Safety Report 14837271 (Version 1)
Quarter: 2018Q2

REPORT INFORMATION
  Report Type: Spontaneous
  Country: US (occurrence: US)
  Receive Date: 20180418
  Receipt Date: 20180418
  Transmission Date: 20180711
  Serious: Yes (Other)
  Sender: FDA-Public Use
  Company Number: None

PATIENT
  Age: 5 Year
  Sex: Female

DRUGS (2)
  1. PREDNISOLONE ACETATE. [Suspect]
     Active Substance: PREDNISOLONE ACETATE
     Indication: TRANSPLANT REJECTION
     Route: 047
     Dates: start: 20121017, end: 20180207
  2. PREDNISOLONE ACETATE. [Concomitant]
     Active Substance: PREDNISOLONE ACETATE
     Dates: start: 20121017, end: 20180417

REACTIONS (3)
  - Transplant failure [None]
  - Product quality issue [None]
  - Transplant rejection [None]

NARRATIVE: CASE EVENT DATE: 20180207
